FAERS Safety Report 5889403-6 (Version None)
Quarter: 2008Q3

REPORT INFORMATION
  Report Type: 
  Country: None (occurrence: None)
  Receive Date: 20080919
  Receipt Date: 20080818
  Transmission Date: 20090109
  Serious: No
  Sender: FDA-Public Use
  Company Number: US-BAYER-200830496NA

PATIENT
  Age: 47 Year
  Sex: Female
  Weight: 59 kg

DRUGS (3)
  1. YAZ [Suspect]
     Indication: CONTRACEPTION
     Route: 048
     Dates: start: 20080730
  2. ZYRTEC [Concomitant]
     Indication: MULTIPLE ALLERGIES
  3. DOXYCYCLINE [Concomitant]
     Indication: ACNE

REACTIONS (4)
  - ABDOMINAL PAIN LOWER [None]
  - ACNE [None]
  - METRORRHAGIA [None]
  - MOOD SWINGS [None]
